FAERS Safety Report 24244582 (Version 1)
Quarter: 2024Q3

REPORT INFORMATION
  Report Type: Spontaneous
  Country: US (occurrence: None)
  Receive Date: 20240823
  Receipt Date: 20240823
  Transmission Date: 20241017
  Serious: No
  Sender: Public
  Company Number: None

PATIENT
  Age: 74 Year
  Sex: Male

DRUGS (1)
  1. AMBRISENTAN [Suspect]
     Active Substance: AMBRISENTAN

REACTIONS (7)
  - COVID-19 [None]
  - Arthralgia [None]
  - Fatigue [None]
  - Dizziness [None]
  - Headache [None]
  - Oxygen saturation decreased [None]
  - Heart rate abnormal [None]
